FAERS Safety Report 7510116-9 (Version None)
Quarter: 2011Q2

REPORT INFORMATION
  Report Type: 
  Country: None (occurrence: None)
  Receive Date: 20110527
  Receipt Date: 20110516
  Transmission Date: 20111010
  Serious: Yes (Other)
  Sender: FDA-Public Use
  Company Number: US-JNJFOC-20110507628

PATIENT
  Sex: Female
  Weight: 128.14 kg

DRUGS (11)
  1. VICODIN [Concomitant]
  2. ULTRAM [Concomitant]
  3. SULFASALAZINE [Concomitant]
  4. PREDNISONE [Concomitant]
  5. PROZAC [Concomitant]
  6. REMICADE [Suspect]
     Indication: RHEUMATOID ARTHRITIS
     Dosage: 8TH INFUSION
     Route: 042
  7. REMICADE [Suspect]
     Route: 042
  8. LEVOTHYROXINE SODIUM [Concomitant]
     Dosage: 125 MCG 1 TAB EVERY MORNING
  9. MTX [Concomitant]
  10. NAPROXEN [Concomitant]
  11. FOLIC ACID [Concomitant]

REACTIONS (4)
  - OXYGEN SATURATION DECREASED [None]
  - HEART RATE INCREASED [None]
  - BLOOD PRESSURE INCREASED [None]
  - INFUSION RELATED REACTION [None]
